FAERS Safety Report 9723769 (Version 1)
Quarter: 2013Q4

REPORT INFORMATION
  Report Type: Spontaneous
  Country: US (occurrence: US)
  Receive Date: 20131202
  Receipt Date: 20131202
  Transmission Date: 20140711
  Serious: Yes (Other)
  Sender: FDA-Public Use
  Company Number: US-TEVA-447289USA

PATIENT
  Age: 39 Year
  Sex: Female
  Weight: 77.18 kg

DRUGS (7)
  1. PARAGARD 380A [Suspect]
     Indication: CONTRACEPTION
     Route: 015
     Dates: start: 20131121, end: 20131123
  2. BUPROPION [Concomitant]
     Indication: ANXIETY
  3. ARIPIPRAZOLE [Concomitant]
     Indication: ANXIETY
  4. OBETROL [Concomitant]
     Indication: ANXIETY
  5. MULTIVITAMIN [Concomitant]
  6. CALCIUM [Concomitant]
  7. MAGNESIUM [Concomitant]

REACTIONS (3)
  - Device dislocation [Recovered/Resolved]
  - Abdominal pain [Recovered/Resolved]
  - Complication of device insertion [Unknown]
